FAERS Safety Report 7187347-3 (Version None)
Quarter: 2010Q4

REPORT INFORMATION
  Report Type: 
  Country: None (occurrence: None)
  Receive Date: 20101222
  Receipt Date: 20101210
  Transmission Date: 20110411
  Serious: Yes (Other)
  Sender: FDA-Public Use
  Company Number: US-ELI_LILLY_AND_COMPANY-US201012003324

PATIENT
  Age: 15 Year
  Sex: Male

DRUGS (2)
  1. STRATTERA [Suspect]
     Indication: ATTENTION DEFICIT/HYPERACTIVITY DISORDER
     Dosage: 40 MG, UNK
     Dates: start: 20101118, end: 20101120
  2. STRATTERA [Suspect]
     Dosage: 80 MG, DAILY (1/D)
     Dates: start: 20101121, end: 20101208

REACTIONS (6)
  - AMNESIA [None]
  - DIZZINESS [None]
  - LOSS OF CONSCIOUSNESS [None]
  - PERSONALITY CHANGE [None]
  - SUICIDAL IDEATION [None]
  - WEIGHT DECREASED [None]
